FAERS Safety Report 24453303 (Version 2)
Quarter: 2024Q4

REPORT INFORMATION
  Report Type: Report from Study
  Country: US (occurrence: US)
  Receive Date: 20241017
  Receipt Date: 20241018
  Transmission Date: 20250114
  Serious: No
  Sender: ROCHE
  Company Number: US-ROCHE-3258122

PATIENT
  Age: 58 Year
  Sex: Female

DRUGS (8)
  1. RITUXAN [Suspect]
     Active Substance: RITUXIMAB
     Indication: Chronic inflammatory demyelinating polyradiculoneuropathy
     Dosage: FOR 3 WEEKS FOLLOWED BY 600 MG MONTHLY, THE DATE OF SERVICE WAS MENTIONED ON 11/JAN/2023, 19/JAN/202
     Route: 042
  2. RITUXAN [Suspect]
     Active Substance: RITUXIMAB
     Dosage: INFUSE 1000MG (1G) INTRAVENOUSLY ON DAY 1 AND DAY 15 AS DIRECTED
     Route: 042
  3. PREDNISONE [Concomitant]
     Active Substance: PREDNISONE
  4. ZOMIG [Concomitant]
     Active Substance: ZOLMITRIPTAN
  5. ZOLPIDEM TARTRATE [Concomitant]
     Active Substance: ZOLPIDEM TARTRATE
  6. OMEPRAZOLE [Concomitant]
     Active Substance: OMEPRAZOLE
  7. ALBUTEROL SULFATE [Concomitant]
     Active Substance: ALBUTEROL SULFATE
  8. ALENDRONATE SODIUM [Concomitant]
     Active Substance: ALENDRONATE SODIUM

REACTIONS (2)
  - Off label use [Unknown]
  - No adverse event [Unknown]
